FAERS Safety Report 13646814 (Version 1)
Quarter: 2017Q2

REPORT INFORMATION
  Report Type: Spontaneous
  Country: US (occurrence: US)
  Receive Date: 20170612
  Receipt Date: 20170612
  Transmission Date: 20170830
  Serious: Yes (Other)
  Sender: FDA-Public Use
  Company Number: None

PATIENT
  Age: 50 Year
  Sex: Female
  Weight: 127.12 kg

DRUGS (11)
  1. CINNAMON. [Concomitant]
     Active Substance: CINNAMON
  2. LOSARTAN. [Concomitant]
     Active Substance: LOSARTAN
  3. VITAMIN D [Concomitant]
     Active Substance: CHOLECALCIFEROL
  4. ZYRTEC [Concomitant]
     Active Substance: CETIRIZINE HYDROCHLORIDE
  5. PANTOPROZALE [Concomitant]
  6. PAPAYA/DIGEST-ALL/SIMETHICONE [Concomitant]
  7. INVOKANA [Suspect]
     Active Substance: CANAGLIFLOZIN
     Indication: DIABETES MELLITUS INADEQUATE CONTROL
     Dosage: 1 PILL ONCE IN MORNING BEFORE FIRST MEAL ORAL
     Route: 048
     Dates: start: 20170217, end: 20170607
  8. INVOKANA [Suspect]
     Active Substance: CANAGLIFLOZIN
     Indication: TYPE 2 DIABETES MELLITUS
     Dosage: 1 PILL ONCE IN MORNING BEFORE FIRST MEAL ORAL
     Route: 048
     Dates: start: 20170217, end: 20170607
  9. KROGER BRAND SEVERE SINUS RELIEF [Concomitant]
  10. ALIVE MULTI-VITAMIN [Concomitant]
  11. CVS WATER PILL [Concomitant]

REACTIONS (15)
  - Parosmia [None]
  - Drug ineffective [None]
  - Micturition disorder [None]
  - Sinusitis [None]
  - Vulvovaginal pruritus [None]
  - Balance disorder [None]
  - Asthenia [None]
  - Dysgeusia [None]
  - Blood glucose increased [None]
  - Skin haemorrhage [None]
  - Scratch [None]
  - Fatigue [None]
  - Sleep attacks [None]
  - Thirst [None]
  - Urinary incontinence [None]

NARRATIVE: CASE EVENT DATE: 20170515
